FAERS Safety Report 22292984 (Version 1)
Quarter: 2023Q2

REPORT INFORMATION
  Report Type: Spontaneous
  Country: CN (occurrence: CN)
  Receive Date: 20230508
  Receipt Date: 20230508
  Transmission Date: 20230722
  Serious: Yes (Hospitalization, Other)
  Sender: FDA-Public Use
  Company Number: CN-IPCA LABORATORIES LIMITED-IPC-2023-CN-000734

PATIENT

DRUGS (3)
  1. METFORMIN HYDROCHLORIDE [Suspect]
     Active Substance: METFORMIN HYDROCHLORIDE
     Indication: Gestational diabetes
     Dosage: 0.5 GRAM, QD
     Route: 065
     Dates: start: 202104
  2. METFORMIN HYDROCHLORIDE [Suspect]
     Active Substance: METFORMIN HYDROCHLORIDE
     Dosage: 0.5 GRAM
     Route: 065
     Dates: start: 202106
  3. METFORMIN HYDROCHLORIDE [Suspect]
     Active Substance: METFORMIN HYDROCHLORIDE
     Dosage: 0.5 GRAM, QD
     Route: 065
     Dates: start: 202107

REACTIONS (2)
  - Drug-induced liver injury [Recovered/Resolved]
  - Acute hepatic failure [Recovered/Resolved]
